FAERS Safety Report 6742081-6 (Version None)
Quarter: 2010Q2

REPORT INFORMATION
  Report Type: 
  Country: None (occurrence: None)
  Receive Date: 20100524
  Receipt Date: 20100512
  Transmission Date: 20101027
  Serious: Yes (Other)
  Sender: FDA-Public Use
  Company Number: 012145

PATIENT

DRUGS (1)
  1. LEVETIRACETAM [Suspect]
     Dosage: UPTITRATED UP TO A TARGET DOSE OF 2000 MG/DAY AT STEPS OF 250 MG/3 DAYS

REACTIONS (1)
  - SELF INJURIOUS BEHAVIOUR [None]
